FAERS Safety Report 4683985-8 (Version None)
Quarter: 2005Q2

REPORT INFORMATION
  Report Type: 
  Country: None (occurrence: None)
  Receive Date: 20050602
  Receipt Date: 20050214
  Transmission Date: 20051028
  Serious: No
  Sender: FDA-Public Use
  Company Number: USA050188943

PATIENT
  Age: 51 Year
  Sex: Male
  Weight: 70 kg

DRUGS (7)
  1. CYMBALTA [Suspect]
     Indication: DEPRESSION
     Dosage: 60 MG DAY
  2. LIPITOR [Concomitant]
  3. ASPIRIN [Concomitant]
  4. PROTONIX [Concomitant]
  5. PERCOCET [Concomitant]
  6. XANAX (ALPRAZOLAM DUM) [Concomitant]
  7. LEVITRA [Concomitant]

REACTIONS (1)
  - HYPERTENSION [None]
